FAERS Safety Report 4915243-8 (Version None)
Quarter: 2006Q1

REPORT INFORMATION
  Report Type: 
  Country: None (occurrence: None)
  Receive Date: 20060217
  Receipt Date: 20060214
  Transmission Date: 20060701
  Serious: No
  Sender: FDA-Public Use
  Company Number: 2006PK00331

PATIENT
  Age: 25556 Day
  Sex: Female
  Weight: 69.3 kg

DRUGS (2)
  1. SEROQUEL [Suspect]
     Indication: DELIRIUM
     Route: 048
     Dates: start: 20051107, end: 20051216
  2. HALDOL [Suspect]
     Indication: DELIRIUM
     Dosage: 1 MG TO 2 MG
     Route: 048
     Dates: start: 20051125, end: 20051214

REACTIONS (2)
  - LEUKOPENIA [None]
  - THROMBOCYTOPENIA [None]
